FAERS Safety Report 17083957 (Version 2)
Quarter: 2020Q1

REPORT INFORMATION
  Report Type: Report from Study
  Country: US (occurrence: US)
  Receive Date: 20191127
  Receipt Date: 20200324
  Transmission Date: 20200409
  Serious: Yes (Death, Other)
  Sender: FDA-Public Use
  Company Number: NVSC2019US048832

PATIENT
  Age: 75 Year
  Sex: Male
  Weight: 100.23 kg

DRUGS (1)
  1. ENTRESTO [Suspect]
     Active Substance: SACUBITRIL\VALSARTAN
     Indication: CARDIAC FAILURE
     Dosage: 1 DF (SACUBITRIL 24MG/VALSARTAN 26MG)
     Route: 065

REACTIONS (4)
  - Respiratory distress [Fatal]
  - Respiratory failure [Fatal]
  - Acute kidney injury [Unknown]
  - Left ventricular failure [Fatal]

NARRATIVE: CASE EVENT DATE: 20180519
